FAERS Safety Report 6807790-9 (Version None)
Quarter: 2010Q2

REPORT INFORMATION
  Report Type: 
  Country: None (occurrence: None)
  Receive Date: 20100629
  Receipt Date: 20081201
  Transmission Date: 20101027
  Serious: No
  Sender: FDA-Public Use
  Company Number: US-PFIZER INC-2008101584

PATIENT
  Sex: Male
  Weight: 75 kg

DRUGS (6)
  1. VIAGRA [Suspect]
     Indication: ERECTILE DYSFUNCTION
     Dosage: 50MG
     Route: 048
     Dates: start: 20040101
  2. ALTACE [Concomitant]
  3. ZOCOR [Concomitant]
  4. AMBIEN [Concomitant]
  5. TOPROL-XL [Concomitant]
  6. ASPIRIN [Concomitant]

REACTIONS (1)
  - EJACULATION FAILURE [None]
